FAERS Safety Report 7355935-7 (Version None)
Quarter: 2011Q1

REPORT INFORMATION
  Report Type: 
  Country: None (occurrence: None)
  Receive Date: 20110310
  Receipt Date: 20110310
  Transmission Date: 20110831
  Serious: Yes (Other)
  Sender: FDA-Public Use
  Company Number: None

PATIENT
  Sex: Female

DRUGS (8)
  1. CHANTIX [Suspect]
     Indication: EX-TOBACCO USER
     Dosage: 5 DOSES ORAL
     Route: 048
     Dates: start: 20110308
  2. CHANTIX [Suspect]
     Indication: EX-TOBACCO USER
     Dosage: 5 DOSES ORAL
     Route: 048
     Dates: start: 20110305
  3. SYMBICORT [Concomitant]
  4. CLONAZEPAM [Concomitant]
  5. CYCLOBENZAPRINE [Concomitant]
  6. VENLAFAXINE HCL EXTENDED-RELEASE [Concomitant]
  7. BENZTROPINE MESYLATE [Concomitant]
  8. CHLORPROMAZINE [Concomitant]

REACTIONS (3)
  - CONFUSIONAL STATE [None]
  - AMNESIA [None]
  - FEELING ABNORMAL [None]
